FAERS Safety Report 11897958 (Version 1)
Quarter: 2016Q1

REPORT INFORMATION
  Report Type: Spontaneous
  Country: ES (occurrence: ES)
  Receive Date: 20160108
  Receipt Date: 20160108
  Transmission Date: 20160526
  Serious: Yes (Life-Threatening, Hospitalization, Other)
  Sender: FDA-Public Use
  Company Number: ES-ELI_LILLY_AND_COMPANY-ES201601000316

PATIENT
  Age: 61 Year
  Sex: Male

DRUGS (8)
  1. EFIENT [Suspect]
     Active Substance: PRASUGREL HYDROCHLORIDE
     Indication: PRODUCT USED FOR UNKNOWN INDICATION
     Dosage: 10 MG, QD
     Route: 048
     Dates: start: 2011, end: 20151211
  2. OMEPRAZOLE. [Concomitant]
     Active Substance: OMEPRAZOLE
     Dosage: 20 MG, BID
     Route: 065
  3. AMLODIPINE [Concomitant]
     Active Substance: AMLODIPINE BESYLATE
     Dosage: 5 MG, QD
     Route: 065
  4. ABSORCOL [Concomitant]
     Dosage: 10 MG, QD
     Route: 065
  5. ATORVASTATIN [Concomitant]
     Active Substance: ATORVASTATIN
     Dosage: 80 MG, QD
     Route: 065
  6. TRIFLUSAL [Concomitant]
     Active Substance: TRIFLUSAL
     Dosage: 600 MG, QD
     Route: 065
  7. LOSARTAN. [Concomitant]
     Active Substance: LOSARTAN
     Dosage: 25 MG, QD
     Route: 065
  8. TRINISPRAY [Concomitant]
     Dosage: 1 DF, PRN
     Route: 060

REACTIONS (5)
  - Productive cough [Recovering/Resolving]
  - Oesophageal ulcer haemorrhage [Unknown]
  - Hypovolaemic shock [Unknown]
  - Vertigo [Unknown]
  - Haemoptysis [Unknown]

NARRATIVE: CASE EVENT DATE: 201511
